FAERS Safety Report 24434419 (Version 2)
Quarter: 2025Q3

REPORT INFORMATION
  Report Type: Spontaneous
  Country: EU (occurrence: EU)
  Receive Date: 20241014
  Receipt Date: 20250809
  Transmission Date: 20251021
  Serious: Yes (Life-Threatening, Hospitalization, Other)
  Sender: ALEXION PHARMACEUTICALS
  Company Number: EU-DCGMA-24204006

PATIENT
  Age: 85 Year
  Sex: Female
  Weight: 80 kg

DRUGS (14)
  1. DAPAGLIFLOZIN [Suspect]
     Active Substance: DAPAGLIFLOZIN
  2. METFORMIN [Suspect]
     Active Substance: METFORMIN HYDROCHLORIDE
     Indication: Type 2 diabetes mellitus
  3. METAMIZOL [Concomitant]
     Active Substance: METAMIZOLE SODIUM
  4. GABAPENTIN [Concomitant]
     Active Substance: GABAPENTIN
     Dosage: DAILY DOSE: 100 MG EVERY 1 DAY
     Route: 065
  5. HYDROCHLOROTHIAZIDE [Concomitant]
     Active Substance: HYDROCHLOROTHIAZIDE
     Indication: Cardiac failure
     Dosage: DAILY DOSE: 12.5 MG EVERY 1 DAY
     Route: 065
  6. EDOXABAN [Concomitant]
     Active Substance: EDOXABAN
     Indication: Atrial fibrillation
     Dosage: DAILY DOSE: 60 MG EVERY 1 DAY
     Route: 065
  7. ESOMEPRAZOLE [Concomitant]
     Active Substance: ESOMEPRAZOLE
     Dosage: DAILY DOSE: 20 MG EVERY 1 DAY
     Route: 065
  8. VILDAGLIPTIN [Concomitant]
     Active Substance: VILDAGLIPTIN
     Indication: Type 2 diabetes mellitus
  9. XIPAMIDE [Concomitant]
     Active Substance: XIPAMIDE
     Indication: Cardiac failure
     Dosage: DAILY DOSE: 20 MG EVERY 1 DAY
     Route: 065
  10. TRAZODONE [Concomitant]
     Active Substance: TRAZODONE HYDROCHLORIDE
     Dosage: DAILY DOSE: 50 MG EVERY 1 DAY
     Route: 065
  11. BISOPROLOL [Concomitant]
     Active Substance: BISOPROLOL
     Indication: Atrial fibrillation
     Dosage: 5MG 1-0-1DAILY DOSE: 10 MG EVERY 1 DAY
     Route: 065
  12. METILDIGOXIN [Concomitant]
     Active Substance: METILDIGOXIN
     Dosage: DAILY DOSE: 0.1 MG EVERY 1 DAY
     Route: 065
  13. ALLOPURINOL [Concomitant]
     Active Substance: ALLOPURINOL
     Indication: Gout
     Dosage: DAILY DOSE: 100 MG EVERY 1 DAY
     Route: 065
  14. TORSEMIDE [Concomitant]
     Active Substance: TORSEMIDE
     Indication: Cardiac failure
     Dosage: DAILY DOSE: 50 MG EVERY 1 DAY
     Route: 065

REACTIONS (4)
  - Tachypnoea [Unknown]
  - Lactic acidosis [Unknown]
  - Metabolic acidosis [Unknown]
  - Ketoacidosis [Unknown]

NARRATIVE: CASE EVENT DATE: 20240919
